FAERS Safety Report 5632973-3 (Version None)
Quarter: 2008Q1

REPORT INFORMATION
  Report Type: 
  Country: None (occurrence: None)
  Receive Date: 20080221
  Receipt Date: 20080218
  Transmission Date: 20080703
  Serious: Yes (Life-Threatening, Hospitalization)
  Sender: FDA-Public Use
  Company Number: PHBS2008ES02290

PATIENT
  Age: 70 Year
  Sex: Female

DRUGS (6)
  1. VOLTAREN [Suspect]
     Indication: BACK PAIN
     Dosage: 150 MG/DAY
     Route: 048
     Dates: start: 20070823, end: 20070831
  2. PLAVIX [Suspect]
     Indication: BACK PAIN
     Dosage: 75 MG, UNK
     Route: 048
     Dates: end: 20070831
  3. ENANTYUM [Suspect]
     Indication: BACK PAIN
     Dosage: 12.5 MG, TID
     Dates: start: 20070823, end: 20070831
  4. TRIALMIN [Concomitant]
     Dosage: 900 MG/DAY
     Route: 048
  5. NOLOTIL [Concomitant]
     Indication: BACK PAIN
     Dosage: 6 G, UNK
     Route: 048
     Dates: start: 20070823, end: 20070831
  6. LOFTON [Concomitant]
     Route: 048

REACTIONS (5)
  - COLONOSCOPY NORMAL [None]
  - DRUG INTERACTION [None]
  - GASTRIC HAEMORRHAGE [None]
  - HAEMATOCRIT DECREASED [None]
  - HAEMOGLOBIN DECREASED [None]
